FAERS Safety Report 24005686 (Version 1)
Quarter: 2024Q2

REPORT INFORMATION
  Report Type: Spontaneous
  Country: FR (occurrence: FR)
  Receive Date: 20240624
  Receipt Date: 20240624
  Transmission Date: 20240715
  Serious: Yes (Other)
  Sender: FDA-Public Use
  Company Number: None

PATIENT
  Age: 40 Year
  Sex: Female
  Weight: 73 kg

DRUGS (2)
  1. MEKTOVI [Suspect]
     Active Substance: BINIMETINIB
     Indication: Metastatic malignant melanoma
     Dosage: 135 MG IN TOTAL
     Route: 048
     Dates: start: 20240223, end: 20240223
  2. BRAFTOVI [Suspect]
     Active Substance: ENCORAFENIB
     Indication: Metastatic malignant melanoma
     Dosage: 3 DF, BID (2/DAY) MORNING AND EVENING
     Route: 048
     Dates: start: 20240219, end: 20240223

REACTIONS (5)
  - Papilloedema [Recovered/Resolved]
  - Incorrect dosage administered [Unknown]
  - Accidental overdose [Unknown]
  - Off label use [Unknown]
  - Product use issue [Unknown]

NARRATIVE: CASE EVENT DATE: 20240223
